FAERS Safety Report 22527395 (Version 8)
Quarter: 2023Q4

REPORT INFORMATION
  Report Type: Spontaneous
  Country: US (occurrence: US)
  Receive Date: 20230606
  Receipt Date: 20231128
  Transmission Date: 20240110
  Serious: Yes (Other)
  Sender: FDA-Public Use
  Company Number: US-PFIZER INC-PV202300097050

PATIENT
  Age: 70 Year
  Sex: Female

DRUGS (2)
  1. IBRANCE [Suspect]
     Active Substance: PALBOCICLIB
     Dosage: 125 MG, CYCLIC
  2. FULVESTRANT [Concomitant]
     Active Substance: FULVESTRANT
     Dosage: UNK
     Dates: end: 2023

REACTIONS (12)
  - Second primary malignancy [Unknown]
  - Ovarian cancer [Unknown]
  - Nocturia [Unknown]
  - Stomatitis [Not Recovered/Not Resolved]
  - Oral mucosal eruption [Unknown]
  - Acne [Unknown]
  - Energy increased [Unknown]
  - Alopecia [Not Recovered/Not Resolved]
  - Nail discolouration [Unknown]
  - Dental discomfort [Unknown]
  - Ovarian disorder [Unknown]
  - Product dose omission issue [Unknown]
